FAERS Safety Report 25789514 (Version 2)
Quarter: 2025Q4

REPORT INFORMATION
  Report Type: Spontaneous
  Country: US (occurrence: US)
  Receive Date: 20250911
  Receipt Date: 20251010
  Transmission Date: 20260117
  Serious: No
  Sender: HETERO
  Company Number: US-HETERO-HET2025US05230

PATIENT

DRUGS (1)
  1. ESZOPICLONE [Suspect]
     Active Substance: ESZOPICLONE
     Indication: Product used for unknown indication
     Dosage: 3 MILLIGRAM
     Route: 065

REACTIONS (1)
  - Drug ineffective [Unknown]
